FAERS Safety Report 10928620 (Version 1)
Quarter: 2015Q1

REPORT INFORMATION
  Report Type: Spontaneous
  Country: US (occurrence: None)
  Receive Date: 20150318
  Receipt Date: 20150318
  Transmission Date: 20150721
  Serious: Yes (Disabling, Other)
  Sender: FDA-Public Use
  Company Number: None

PATIENT
  Age: 49 Year
  Sex: Female
  Weight: 68.04 kg

DRUGS (16)
  1. DEPAKOTE ER [Concomitant]
     Active Substance: DIVALPROEX SODIUM
  2. FIORICET [Concomitant]
     Active Substance: ACETAMINOPHEN\BUTALBITAL\CAFFEINE
  3. ACIDOPHILUS [Concomitant]
     Active Substance: LACTOBACILLUS ACIDOPHILUS
  4. ATIVAN [Concomitant]
     Active Substance: LORAZEPAM
  5. GABAPENTIN. [Concomitant]
     Active Substance: GABAPENTIN
  6. IBUPROFEN. [Concomitant]
     Active Substance: IBUPROFEN
  7. AMBIEN [Concomitant]
     Active Substance: ZOLPIDEM TARTRATE
  8. OTC SINUS MEDS [Concomitant]
  9. SEROQUEL [Concomitant]
     Active Substance: QUETIAPINE FUMARATE
  10. TRAMADOL [Concomitant]
     Active Substance: TRAMADOL
  11. JUBLIA [Suspect]
     Active Substance: EFINACONAZOLE
     Indication: ONYCHOMYCOSIS
     Dosage: 2 GTTS AS A THIN LAYER
     Route: 061
     Dates: start: 201412
  12. MAXALT PRN [Concomitant]
  13. TYLENOL [Concomitant]
     Active Substance: ACETAMINOPHEN
  14. CALCIUM [Concomitant]
     Active Substance: CALCIUM
  15. MELATONIN [Concomitant]
     Active Substance: MELATONIN
  16. ASA [Concomitant]
     Active Substance: ASPIRIN

REACTIONS (3)
  - Pain [None]
  - Arthralgia [None]
  - Inadequate analgesia [None]

NARRATIVE: CASE EVENT DATE: 201412
